FAERS Safety Report 7961075-6 (Version None)
Quarter: 2011Q4

REPORT INFORMATION
  Report Type: 
  Country: None (occurrence: None)
  Receive Date: 20111207
  Receipt Date: 20111201
  Transmission Date: 20120403
  Serious: Yes (Life-Threatening, Hospitalization)
  Sender: FDA-Public Use
  Company Number: JP-ELI_LILLY_AND_COMPANY-JP201010004049

PATIENT
  Sex: Male
  Weight: 51.4 kg

DRUGS (7)
  1. LANSOPRAZOLE [Concomitant]
     Indication: GASTROOESOPHAGEAL REFLUX DISEASE
     Dosage: 15 MG, QD
     Route: 048
     Dates: end: 20100908
  2. LOXONIN [Concomitant]
     Indication: PYREXIA
     Dosage: UNK, AS NEEDED
     Route: 048
     Dates: start: 20100820, end: 20100903
  3. OTS102 [Suspect]
     Indication: GALLBLADDER CANCER STAGE IV
     Dosage: 1 ML, WEEKLY (1/W)
     Route: 058
     Dates: start: 20100702, end: 20101001
  4. AMLODIPINE [Concomitant]
     Indication: HYPERTENSION
     Dosage: 5 MG, DAILY (1/D)
     Route: 048
     Dates: end: 20101008
  5. LOXONIN [Concomitant]
     Dosage: 60 MG, 2/D
     Route: 048
     Dates: start: 20100903, end: 20100909
  6. GEMCITABINE HYDROCHLORIDE [Suspect]
     Indication: GALLBLADDER CANCER STAGE IV
     Dosage: 1520 MG, WEEKLY FOR THREE WEEKS FOLLOWED BY ONE WEEK REST
     Route: 042
     Dates: start: 20100702, end: 20100924
  7. MUCOSTA [Concomitant]
     Indication: PROPHYLAXIS AGAINST GASTROINTESTINAL ULCER
     Dosage: 100 MG, 2/D
     Route: 048
     Dates: start: 20100903, end: 20100909

REACTIONS (1)
  - THROMBOTIC MICROANGIOPATHY [None]
